FAERS Safety Report 8152554 (Version 4)
Quarter: 2013Q2

REPORT INFORMATION
  Report Type: Spontaneous
  Country: US (occurrence: US)
  Receive Date: 20110922
  Receipt Date: 20130620
  Transmission Date: 20140414
  Serious: Yes (Other)
  Sender: FDA-Public Use
  Company Number: US-ASTRAZENECA-2011SE12580

PATIENT
  Age: 51 Year
  Sex: Female

DRUGS (9)
  1. SEROQUEL [Suspect]
     Indication: DEPRESSION
     Route: 048
     Dates: start: 20060612
  2. SEROQUEL [Suspect]
     Indication: DEPRESSION
     Route: 048
     Dates: start: 200711
  3. LEXAPRO [Concomitant]
     Dates: start: 20060612
  4. LEXAPRO [Concomitant]
     Dates: end: 20070102
  5. HYDROCHLOROTHIAZIDE [Concomitant]
     Dates: end: 200711
  6. KEFLEX [Concomitant]
     Dates: start: 200711
  7. CATAPRES [Concomitant]
     Route: 048
     Dates: start: 200711
  8. CYMBALTA [Concomitant]
     Dates: start: 20070102
  9. CYMBALTA [Concomitant]
     Dates: start: 20070428

REACTIONS (3)
  - Pancreatitis [Unknown]
  - Diabetic coma [Unknown]
  - Type 2 diabetes mellitus [Unknown]
